FAERS Safety Report 8860384 (Version 2)
Quarter: 2013Q1

REPORT INFORMATION
  Report Type: Report from Study
  Country: CA (occurrence: CA)
  Receive Date: 20121025
  Receipt Date: 20130211
  Transmission Date: 20140127
  Serious: Yes (Other)
  Sender: FDA-Public Use
  Company Number: CA-JNJFOC-20121007616

PATIENT
  Sex: Female
  Weight: 62.7 kg

DRUGS (13)
  1. REMICADE [Suspect]
     Indication: COLITIS ULCERATIVE
     Dosage: INFUSION NUMBER 11
     Route: 042
     Dates: start: 20120821
  2. REMICADE [Suspect]
     Indication: COLITIS ULCERATIVE
     Route: 042
     Dates: start: 20130131
  3. REMICADE [Suspect]
     Indication: COLITIS ULCERATIVE
     Route: 042
     Dates: start: 201106
  4. REMICADE [Suspect]
     Indication: COLITIS ULCERATIVE
     Route: 042
     Dates: start: 201201
  5. GRAVOL [Concomitant]
     Indication: PREMEDICATION
     Route: 042
  6. GRAVOL [Concomitant]
     Indication: PREMEDICATION
     Route: 042
     Dates: start: 20130131
  7. IMURAN [Concomitant]
     Route: 048
  8. SALOFALK [Concomitant]
     Route: 048
  9. VENLAFAXINE [Concomitant]
     Route: 065
  10. VITAMIN D [Concomitant]
     Route: 065
  11. CALCIUM [Concomitant]
     Route: 065
  12. VITAMIN B12 [Concomitant]
     Route: 065
  13. OTHER THERAPEUTIC PRODUCT [Concomitant]
     Route: 065

REACTIONS (5)
  - Haematochezia [Not Recovered/Not Resolved]
  - Endodontic procedure [Recovered/Resolved]
  - Infusion related reaction [Unknown]
  - Nausea [Unknown]
  - Nasopharyngitis [Not Recovered/Not Resolved]
